FAERS Safety Report 9134341 (Version 1)
Quarter: 2013Q1

REPORT INFORMATION
  Report Type: Spontaneous
  Country: US (occurrence: US)
  Receive Date: 20130304
  Receipt Date: 20130304
  Transmission Date: 20140127
  Serious: No
  Sender: FDA-Public Use
  Company Number: US-JNJFOC-20130109869

PATIENT
  Sex: Male
  Weight: 72.58 kg

DRUGS (2)
  1. INVEGA SUSTENNA [Suspect]
     Indication: DEPRESSION
     Route: 030
     Dates: start: 20121205
  2. UNKNOWN MEDICATION [Concomitant]
     Route: 065

REACTIONS (1)
  - Anxiety [Recovering/Resolving]
